FAERS Safety Report 5424579-6 (Version None)
Quarter: 2007Q3

REPORT INFORMATION
  Report Type: 
  Country: None (occurrence: None)
  Receive Date: 20070822
  Receipt Date: 20070807
  Transmission Date: 20080115
  Serious: Yes (Other)
  Sender: FDA-Public Use
  Company Number: 017005

PATIENT
  Age: 22 Year
  Sex: Female

DRUGS (2)
  1. CLARAVIS [Suspect]
     Dosage: 40 MG, QD, ORAL, 20 MG, TID, ORAL
     Route: 048
     Dates: start: 20070306, end: 20070405
  2. CLARAVIS [Suspect]
     Dosage: 40 MG, QD, ORAL, 20 MG, TID, ORAL
     Route: 048
     Dates: start: 20070410, end: 20070706

REACTIONS (2)
  - DRUG EXPOSURE BEFORE PREGNANCY [None]
  - UNINTENDED PREGNANCY [None]
